FAERS Safety Report 14850081 (Version 1)
Quarter: 2018Q2

REPORT INFORMATION
  Report Type: Spontaneous
  Country: CA (occurrence: CA)
  Receive Date: 20180504
  Receipt Date: 20180504
  Transmission Date: 20180711
  Serious: Yes (Other)
  Sender: FDA-Public Use
  Company Number: CA-TEVA-2018-CA-887776

PATIENT
  Sex: Male

DRUGS (3)
  1. ATIVAN [Concomitant]
     Active Substance: LORAZEPAM
  2. RISPERIDONE. [Suspect]
     Active Substance: RISPERIDONE
     Route: 065
  3. RISPERIDONE. [Suspect]
     Active Substance: RISPERIDONE
     Indication: ANXIETY
     Route: 065

REACTIONS (5)
  - Anger [Recovered/Resolved]
  - Mood swings [Recovered/Resolved]
  - Intentional self-injury [Recovered/Resolved]
  - Product substitution issue [Recovered/Resolved]
  - Insomnia [Recovered/Resolved]
